FAERS Safety Report 16884714 (Version 5)
Quarter: 2019Q4

REPORT INFORMATION
  Report Type: Spontaneous
  Country: US (occurrence: US)
  Receive Date: 20191004
  Receipt Date: 20191120
  Transmission Date: 20200122
  Serious: Yes (Hospitalization)
  Sender: FDA-Public Use
  Company Number: US-KYOWAKIRIN-2019BKK015178

PATIENT

DRUGS (2)
  1. ERGOCALCIFEROL. [Concomitant]
     Active Substance: ERGOCALCIFEROL
     Indication: PRODUCT USED FOR UNKNOWN INDICATION
     Dosage: 50000 IU, 1X/2 WEEKS
     Route: 048
  2. CRYSVITA [Suspect]
     Active Substance: BUROSUMAB-TWZA
     Indication: HEREDITARY HYPOPHOSPHATAEMIC RICKETS
     Dosage: 40 MG, 1X/2 WEEKS
     Route: 058
     Dates: start: 20190916

REACTIONS (12)
  - Pyrexia [Recovered/Resolved]
  - Nausea [Unknown]
  - Headache [Unknown]
  - Oesophageal ulcer [Recovered/Resolved]
  - Inappropriate schedule of product administration [Unknown]
  - Dysphagia [Recovered/Resolved]
  - Chest pain [Unknown]
  - Aphonia [Recovering/Resolving]
  - Herpes simplex [Unknown]
  - Mouth ulceration [Recovered/Resolved]
  - Myalgia [Recovered/Resolved]
  - Injection site pruritus [Unknown]

NARRATIVE: CASE EVENT DATE: 2019
